FAERS Safety Report 19609977 (Version 4)
Quarter: 2021Q3

REPORT INFORMATION
  Report Type: Spontaneous
  Country: US (occurrence: US)
  Receive Date: 20210726
  Receipt Date: 20210913
  Transmission Date: 20211014
  Serious: No
  Sender: FDA-Public Use
  Company Number: US-GLAXOSMITHKLINE-US2021AMR157721

PATIENT
  Sex: Female

DRUGS (3)
  1. ZEJULA [Suspect]
     Active Substance: NIRAPARIB
     Indication: PRODUCT USED FOR UNKNOWN INDICATION
     Dosage: 200 MG, QD
  2. ZEJULA [Suspect]
     Active Substance: NIRAPARIB
     Dosage: 200MG, QD
  3. ZEJULA [Suspect]
     Active Substance: NIRAPARIB
     Dosage: 100MG, QD
     Route: 048

REACTIONS (12)
  - Blood pressure increased [Unknown]
  - Red blood cell count decreased [Unknown]
  - Blood pressure systolic increased [Unknown]
  - Disturbance in attention [Unknown]
  - Haematocrit decreased [Not Recovered/Not Resolved]
  - Pain in extremity [Unknown]
  - Insomnia [Recovering/Resolving]
  - Erythema [Unknown]
  - Visual impairment [Unknown]
  - White blood cell count decreased [Unknown]
  - Nausea [Not Recovered/Not Resolved]
  - Haemoglobin decreased [Unknown]
